FAERS Safety Report 25556747 (Version 1)
Quarter: 2025Q3

REPORT INFORMATION
  Report Type: Spontaneous
  Country: US (occurrence: None)
  Receive Date: 20250715
  Receipt Date: 20250715
  Transmission Date: 20251020
  Serious: Yes (unspecified)
  Sender: FDA-CTU
  Company Number: None

PATIENT
  Age: 41 Year
  Sex: Female
  Weight: 47.25 kg

DRUGS (6)
  1. TRAMADOL HCL [Suspect]
     Active Substance: TRAMADOL HYDROCHLORIDE
     Indication: Headache
     Dosage: 1 TABLET(S) 3 TIMES A DAY ORAL ?
     Route: 048
     Dates: start: 20250612, end: 20250617
  2. TRAMADOL HCL [Suspect]
     Active Substance: TRAMADOL HYDROCHLORIDE
     Indication: Fibromyalgia
  3. TRAMADOL [Concomitant]
     Active Substance: TRAMADOL
  4. NURTEC ODT [Concomitant]
     Active Substance: RIMEGEPANT SULFATE
  5. PROBIOTICS NOS [Concomitant]
     Active Substance: PROBIOTICS NOS
  6. TYLENOL [Concomitant]
     Active Substance: ACETAMINOPHEN

REACTIONS (3)
  - Abdominal pain [None]
  - Migraine [None]
  - Adverse drug reaction [None]

NARRATIVE: CASE EVENT DATE: 20250617
